FAERS Safety Report 5333691-1 (Version None)
Quarter: 2007Q2

REPORT INFORMATION
  Report Type: 
  Country: None (occurrence: None)
  Receive Date: 20070524
  Receipt Date: 20070516
  Transmission Date: 20071010
  Serious: Yes (Life-Threatening, Hospitalization, Other)
  Sender: FDA-Public Use
  Company Number: B0454162A

PATIENT
  Sex: Male
  Weight: 80 kg

DRUGS (6)
  1. AUGMENTIN '125' [Suspect]
     Route: 048
     Dates: start: 20061201
  2. AMOXICILLIN + CLAVULANATE POTASSIUM [Concomitant]
     Dosage: 625MG PER DAY
     Route: 048
     Dates: start: 20061201, end: 20061201
  3. AMLODIPINE [Concomitant]
     Dosage: 5MG PER DAY
     Route: 048
  4. ASPIRIN [Concomitant]
     Dosage: 75MG PER DAY
     Route: 048
  5. ATORVASTATIN CALCIUM [Concomitant]
     Indication: BLOOD CHOLESTEROL INCREASED
     Dosage: 10MG PER DAY
     Route: 048
  6. BENDROFLUAZIDE [Concomitant]
     Dosage: 2.5MG PER DAY
     Route: 048

REACTIONS (7)
  - ANAPHYLACTIC REACTION [None]
  - HYPERHIDROSIS [None]
  - NEUTROPHIL COUNT INCREASED [None]
  - OEDEMA MOUTH [None]
  - PARAESTHESIA [None]
  - PHARYNGEAL OEDEMA [None]
  - RASH GENERALISED [None]
